FAERS Safety Report 15904343 (Version 1)
Quarter: 2019Q1

REPORT INFORMATION
  Report Type: Spontaneous
  Country: US (occurrence: US)
  Receive Date: 20190204
  Receipt Date: 20190204
  Transmission Date: 20190417
  Serious: No
  Sender: FDA-Public Use
  Company Number: US-ASTRAZENECA-2019SE19551

PATIENT
  Sex: Female

DRUGS (1)
  1. NEXIUM 24HR [Suspect]
     Active Substance: ESOMEPRAZOLE MAGNESIUM
     Indication: REFLUX LARYNGITIS
     Dosage: UNK UNK, 1X/DAY (TAKE IT THREE HOURS BEFORE BEDTIME)
     Route: 048

REACTIONS (3)
  - Intentional product use issue [Unknown]
  - Restlessness [Unknown]
  - Gastrointestinal sounds abnormal [Unknown]
